FAERS Safety Report 7837313-7 (Version None)
Quarter: 2011Q4

REPORT INFORMATION
  Report Type: 
  Country: None (occurrence: None)
  Receive Date: 20111024
  Receipt Date: 20111014
  Transmission Date: 20120403
  Serious: Yes (Hospitalization)
  Sender: FDA-Public Use
  Company Number: MX-ASTRAZENECA-2011SE62733

PATIENT
  Age: 26 Year
  Sex: Female

DRUGS (2)
  1. SEROQUEL [Suspect]
     Indication: SCHIZOPHRENIA, PARANOID TYPE
     Route: 048
  2. SEROQUEL [Suspect]
     Route: 048
     Dates: start: 20111006

REACTIONS (4)
  - EYE PAIN [None]
  - EYELID BLEEDING [None]
  - EPISTAXIS [None]
  - HEADACHE [None]
